FAERS Safety Report 7941356-2 (Version None)
Quarter: 2011Q4

REPORT INFORMATION
  Report Type: 
  Country: None (occurrence: None)
  Receive Date: 20111128
  Receipt Date: 20111121
  Transmission Date: 20120403
  Serious: Yes (Death, Life-Threatening, Hospitalization)
  Sender: FDA-Public Use
  Company Number: JP-BAYER-2011-011131

PATIENT
  Age: 62 Year
  Sex: Male

DRUGS (3)
  1. NEXAVAR [Suspect]
     Indication: RENAL CELL CARCINOMA
     Dosage: 400 MG, QD
     Route: 048
     Dates: start: 20100716, end: 20111011
  2. EVEROLIMUS [Concomitant]
     Dosage: UNK
     Route: 048
     Dates: start: 20111025
  3. NEXAVAR [Suspect]
     Dosage: 600 MG, QD
     Route: 048
     Dates: start: 20110112

REACTIONS (6)
  - PLEURAL EFFUSION [None]
  - LYMPHANGIOSIS CARCINOMATOSA [None]
  - PALMAR-PLANTAR ERYTHRODYSAESTHESIA SYNDROME [None]
  - RENAL CELL CARCINOMA [None]
  - RESPIRATORY RATE DECREASED [None]
  - DECREASED APPETITE [None]
